FAERS Safety Report 6300556-8 (Version None)
Quarter: 2009Q3

REPORT INFORMATION
  Report Type: 
  Country: None (occurrence: None)
  Receive Date: 20090806
  Receipt Date: 20090428
  Transmission Date: 20100115
  Serious: No
  Sender: FDA-Public Use
  Company Number: US-ABBOTT-09P-163-0570631-00

PATIENT
  Sex: Female
  Weight: 84.898 kg

DRUGS (6)
  1. DEPAKOTE ER [Suspect]
     Indication: BIPOLAR DISORDER
     Route: 048
     Dates: start: 20060101
  2. DEPAKOTE ER [Suspect]
     Indication: SCHIZOPHRENIA
  3. DEPAKOTE ER [Suspect]
     Indication: ATTENTION DEFICIT/HYPERACTIVITY DISORDER
  4. LORAZEPAM [Concomitant]
     Indication: ANXIETY
  5. ADDERALL 10 [Concomitant]
     Indication: ATTENTION DEFICIT/HYPERACTIVITY DISORDER
  6. RISPERDAL [Concomitant]
     Indication: SCHIZOPHRENIA

REACTIONS (7)
  - ALOPECIA [None]
  - ANORECTAL DISCOMFORT [None]
  - DELUSIONAL DISORDER, UNSPECIFIED TYPE [None]
  - DRUG INEFFECTIVE [None]
  - DRUG LEVEL INCREASED [None]
  - PAIN [None]
  - WEIGHT INCREASED [None]
